FAERS Safety Report 12500215 (Version 2)
Quarter: 2016Q3

REPORT INFORMATION
  Report Type: Spontaneous
  Country: BR (occurrence: BR)
  Receive Date: 20160627
  Receipt Date: 20160923
  Transmission Date: 20161109
  Serious: Yes (Hospitalization, Other)
  Sender: FDA-Public Use
  Company Number: BR-GLAXOSMITHKLINE-BR2016GSK090117

PATIENT
  Sex: Male

DRUGS (4)
  1. FLIXOTIDE (CFC-FREE) [Suspect]
     Active Substance: FLUTICASONE PROPIONATE
     Indication: ASTHMATIC CRISIS
     Dosage: 2 PUFF(S), BID
     Dates: start: 201503, end: 201608
  2. FLIXOTIDE (CFC-FREE) [Suspect]
     Active Substance: FLUTICASONE PROPIONATE
     Dosage: 50 UG, UNK
     Dates: end: 201510
  3. FLIXOTIDE (CFC-FREE) [Suspect]
     Active Substance: FLUTICASONE PROPIONATE
     Dosage: 250 UG, UNK
  4. FLIXOTIDE (CFC-FREE) [Suspect]
     Active Substance: FLUTICASONE PROPIONATE
     Dosage: 50 UNK, UNK
     Dates: start: 201603

REACTIONS (2)
  - Drug effect decreased [Recovered/Resolved]
  - Asthmatic crisis [Recovered/Resolved]
